FAERS Safety Report 5144070-4 (Version None)
Quarter: 2006Q4

REPORT INFORMATION
  Report Type: 
  Country: None (occurrence: None)
  Receive Date: 20061106
  Receipt Date: 20061005
  Transmission Date: 20070319
  Serious: Yes (Hospitalization)
  Sender: FDA-Public Use
  Company Number: JP-JPN-A200604071

PATIENT
  Age: 72 Year
  Sex: Male

DRUGS (3)
  1. VALTREX [Suspect]
     Indication: HERPES ZOSTER
     Dosage: 1000MG THREE TIMES PER DAY
     Route: 048
     Dates: start: 20060922, end: 20060925
  2. NORVASC [Concomitant]
     Indication: HYPERTENSION
     Dosage: 5MG PER DAY
     Route: 048
  3. RENIVACE [Concomitant]
     Indication: HYPERTENSION
     Dosage: 2.5MG PER DAY
     Route: 048

REACTIONS (5)
  - ANOREXIA [None]
  - NAUSEA [None]
  - RENAL FAILURE ACUTE [None]
  - RENAL IMPAIRMENT [None]
  - VOMITING [None]
